FAERS Safety Report 4917683-X (Version None)
Quarter: 2006Q1

REPORT INFORMATION
  Report Type: 
  Country: None (occurrence: None)
  Receive Date: 20060215
  Receipt Date: 20060203
  Transmission Date: 20060701
  Serious: Yes (Hospitalization)
  Sender: FDA-Public Use
  Company Number: 221767

PATIENT
  Age: 60 Year
  Sex: Female

DRUGS (7)
  1. HERCEPTIN [Suspect]
     Indication: BREAST CANCER METASTATIC
     Dates: start: 20060109, end: 20060109
  2. TAXOL [Suspect]
     Indication: BREAST CANCER METASTATIC
     Dates: start: 20060109, end: 20060109
  3. PERCOCET [Concomitant]
  4. LORTAB [Concomitant]
  5. PHENERGAN [Concomitant]
  6. PROCHLORPERAZINE MALEATE [Concomitant]
  7. LIDOCAINE [Concomitant]

REACTIONS (6)
  - ATRIAL FIBRILLATION [None]
  - CARDIAC ARREST [None]
  - DYSPNOEA [None]
  - SEPSIS [None]
  - SINUS TACHYCARDIA [None]
  - VENTRICULAR FIBRILLATION [None]
